FAERS Safety Report 11825557 (Version 1)
Quarter: 2015Q4

REPORT INFORMATION
  Report Type: Spontaneous
  Country: US (occurrence: US)
  Receive Date: 20151211
  Receipt Date: 20151211
  Transmission Date: 20160305
  Serious: No
  Sender: FDA-Public Use
  Company Number: US-JNJFOC-20150615908

PATIENT
  Age: 73 Year
  Sex: Female
  Weight: 63 kg

DRUGS (19)
  1. LIPITOR [Concomitant]
     Active Substance: ATORVASTATIN CALCIUM
     Route: 048
     Dates: start: 20141002
  2. ACETAMINOPHEN AND CODEINE [Concomitant]
     Active Substance: ACETAMINOPHEN\CODEINE PHOSPHATE
     Route: 048
     Dates: start: 20141022
  3. IRON [Concomitant]
     Active Substance: IRON
     Dates: start: 20101202
  4. BENDAMUSTINE [Concomitant]
     Active Substance: BENDAMUSTINE
     Indication: CHRONIC LYMPHOCYTIC LEUKAEMIA
  5. IMMUNOGLOBULIN [Concomitant]
     Active Substance: HUMAN IMMUNOGLOBULIN G
     Indication: HYPOGAMMAGLOBULINAEMIA
  6. METOPROLOL SUCCINATE. [Concomitant]
     Active Substance: METOPROLOL SUCCINATE
     Route: 048
     Dates: start: 20150614
  7. MULTIPLE VITAMINS [Concomitant]
     Active Substance: VITAMINS
     Dates: start: 20101202
  8. TRAMADOL HCL [Concomitant]
     Active Substance: TRAMADOL HYDROCHLORIDE
     Dates: start: 20130913
  9. IMBRUVICA [Suspect]
     Active Substance: IBRUTINIB
     Indication: CHRONIC LYMPHOCYTIC LEUKAEMIA
     Route: 048
     Dates: start: 20150222
  10. FLORA-Q [Concomitant]
     Dates: start: 20130808
  11. METRONIDAZOLE. [Concomitant]
     Active Substance: METRONIDAZOLE
     Dates: start: 20150323, end: 20150403
  12. ASPIRIN. [Concomitant]
     Active Substance: ASPIRIN
     Route: 048
  13. ONDANSETRON [Concomitant]
     Active Substance: ONDANSETRON
     Route: 048
     Dates: start: 20130830
  14. SERTRALINE HCL [Concomitant]
     Active Substance: SERTRALINE HYDROCHLORIDE
     Route: 048
     Dates: start: 20140109
  15. ALLOPURINOL. [Concomitant]
     Active Substance: ALLOPURINOL
     Route: 048
     Dates: start: 20150305
  16. AZITHROMYCIN [Concomitant]
     Active Substance: AZITHROMYCIN ANHYDROUS
     Route: 048
     Dates: start: 20150226
  17. NEULASTA [Concomitant]
     Active Substance: PEGFILGRASTIM
  18. RITUXIMAB [Concomitant]
     Active Substance: RITUXIMAB
     Indication: CHRONIC LYMPHOCYTIC LEUKAEMIA
  19. BIAXIN [Concomitant]
     Active Substance: CLARITHROMYCIN
     Route: 048
     Dates: start: 20141002, end: 2015

REACTIONS (18)
  - Contusion [Recovered/Resolved]
  - Dyspnoea exertional [Unknown]
  - Swelling [Recovering/Resolving]
  - Scratch [Unknown]
  - Muscular weakness [Unknown]
  - Dizziness [Unknown]
  - Heart rate increased [Unknown]
  - Joint swelling [Unknown]
  - Peripheral swelling [Recovering/Resolving]
  - Joint stiffness [Unknown]
  - Diarrhoea [Recovering/Resolving]
  - White blood cell count increased [Recovering/Resolving]
  - Fatigue [Not Recovered/Not Resolved]
  - Mass [Recovered/Resolved]
  - Gait disturbance [Unknown]
  - Mycobacterium avium complex infection [Recovering/Resolving]
  - Skin wound [Unknown]
  - Arthralgia [Unknown]

NARRATIVE: CASE EVENT DATE: 2015
